FAERS Safety Report 9925905 (Version 2)
Quarter: 2014Q1

REPORT INFORMATION
  Report Type: Report from Study
  Country: US (occurrence: US)
  Receive Date: 20140226
  Receipt Date: 20140227
  Transmission Date: 20141002
  Serious: Yes (Death, Hospitalization, Other)
  Sender: FDA-Public Use
  Company Number: US-TAKEDA-2014TUS001345

PATIENT
  Sex: 0

DRUGS (3)
  1. COLCRYS [Suspect]
     Indication: GOUT
     Dosage: 0.6 MG, QD
     Route: 048
     Dates: start: 20100210, end: 201402
  2. UNKNOWN HEART PILL [Concomitant]
     Indication: CARDIAC DISORDER
  3. ALL OTHER THERAPEUTIC PRODUCTS [Concomitant]

REACTIONS (7)
  - Urinary tract infection [Fatal]
  - Abasia [Fatal]
  - Bedridden [Fatal]
  - Myocardial infarction [Fatal]
  - Cardiac failure [Fatal]
  - Sepsis [Fatal]
  - General physical health deterioration [Fatal]
